FAERS Safety Report 5927236-2 (Version None)
Quarter: 2008Q4

REPORT INFORMATION
  Report Type: 
  Country: None (occurrence: None)
  Receive Date: 20081022
  Receipt Date: 20081014
  Transmission Date: 20090506
  Serious: Yes (Hospitalization)
  Sender: FDA-Public Use
  Company Number: US-AMGEN-QUU311617

PATIENT
  Sex: Female

DRUGS (1)
  1. ENBREL [Suspect]
     Indication: PSORIASIS
     Route: 058
     Dates: start: 20050629

REACTIONS (7)
  - CONTUSION [None]
  - DRUG ERUPTION [None]
  - OSTEOARTHRITIS [None]
  - PRURITUS [None]
  - PURPURA [None]
  - RASH [None]
  - VASCULITIS [None]
